FAERS Safety Report 16388122 (Version 1)
Quarter: 2019Q2

REPORT INFORMATION
  Report Type: Report from Study
  Country: JP (occurrence: JP)
  Receive Date: 20190604
  Receipt Date: 20190604
  Transmission Date: 20190711
  Serious: Yes (Hospitalization)
  Sender: FDA-Public Use
  Company Number: JP-ACTELION-A-CH2019-190924

PATIENT
  Age: 86 Year
  Sex: Female

DRUGS (12)
  1. PREDNISOLONE. [Concomitant]
     Active Substance: PREDNISOLONE
  2. ALFAROL [Concomitant]
     Active Substance: ALFACALCIDOL
  3. MAGMITT [Concomitant]
     Active Substance: MAGNESIUM OXIDE
  4. LIXIANA [Concomitant]
     Active Substance: EDOXABAN TOSYLATE
  5. TIZANIDINE. [Concomitant]
     Active Substance: TIZANIDINE
  6. OPSUMIT [Suspect]
     Active Substance: MACITENTAN
     Indication: PULMONARY HYPERTENSION
     Dosage: 10 MG, QD
     Route: 048
     Dates: start: 20180914
  7. SAMSCA [Concomitant]
     Active Substance: TOLVAPTAN
  8. LIPIDIL [Concomitant]
     Active Substance: FENOFIBRATE
  9. ETIZOLAM [Concomitant]
     Active Substance: ETIZOLAM
  10. FERROMIA [Concomitant]
     Active Substance: SODIUM FERROUS CITRATE
  11. TAKECAB [Concomitant]
     Active Substance: VONOPRAZAN FUMURATE
  12. FEBURIC [Concomitant]
     Active Substance: FEBUXOSTAT

REACTIONS (1)
  - Pneumonia [Recovered/Resolved]

NARRATIVE: CASE EVENT DATE: 20181010
